FAERS Safety Report 5267670-X (Version None)
Quarter: 2007Q1

REPORT INFORMATION
  Report Type: 
  Country: None (occurrence: None)
  Receive Date: 20070316
  Receipt Date: 20070306
  Transmission Date: 20070707
  Serious: No
  Sender: FDA-Public Use
  Company Number: US-PFIZER INC-2007007029

PATIENT
  Sex: Male
  Weight: 83.9 kg

DRUGS (2)
  1. LIPITOR [Suspect]
     Indication: BLOOD CHOLESTEROL INCREASED
  2. NEXIUM [Concomitant]
     Indication: GASTROOESOPHAGEAL REFLUX DISEASE

REACTIONS (1)
  - NO ADVERSE EFFECT [None]
